FAERS Safety Report 25233834 (Version 1)
Quarter: 2025Q2

REPORT INFORMATION
  Report Type: Spontaneous
  Country: FR (occurrence: FR)
  Receive Date: 20250424
  Receipt Date: 20250424
  Transmission Date: 20250717
  Serious: Yes (Hospitalization, Other)
  Sender: NORDIC PHARMA
  Company Number: None

PATIENT
  Age: 84 Year
  Sex: Female
  Weight: 64.2 kg

DRUGS (11)
  1. METHOTREXATE [Suspect]
     Active Substance: METHOTREXATE
     Indication: Rheumatoid arthritis
     Route: 065
     Dates: start: 2020, end: 20240819
  2. ESOMEPRAZOLE [Concomitant]
     Active Substance: ESOMEPRAZOLE
     Indication: Gastrooesophageal reflux disease
     Route: 048
  3. GAVISCON, suspension buvable en sachet [Concomitant]
     Indication: Gastrooesophageal reflux disease
     Route: 048
  4. FOLIC ACID [Concomitant]
     Active Substance: FOLIC ACID
     Indication: Drug toxicity prophylaxis
     Route: 048
  5. ACETAMINOPHEN [Concomitant]
     Active Substance: ACETAMINOPHEN
     Indication: Pain
     Route: 048
  6. PREDNISONE [Concomitant]
     Active Substance: PREDNISONE
     Indication: Rheumatoid arthritis
     Route: 048
     Dates: start: 2020
  7. FLUTICASONE FUROATE\VILANTEROL TRIFENATATE [Concomitant]
     Active Substance: FLUTICASONE FUROATE\VILANTEROL TRIFENATATE
     Indication: Product used for unknown indication
  8. LEVOTHYROXINE SODIUM [Concomitant]
     Active Substance: LEVOTHYROXINE SODIUM
     Indication: Thyroidectomy
     Route: 048
  9. KARDEGIC [Concomitant]
     Active Substance: ASPIRIN DL-LYSINE
     Indication: Cardiovascular event prophylaxis
     Route: 048
  10. HYDREA [Concomitant]
     Active Substance: HYDROXYUREA
     Indication: Essential thrombocythaemia
     Route: 048
     Dates: start: 2020
  11. NUTRIVISC 5 POUR CENT (20 mg/0,4 ml), collyre en solution en r?cipi... [Concomitant]
     Indication: Dry eye

REACTIONS (2)
  - Squamous cell carcinoma of skin [Recovering/Resolving]
  - Pneumonia cryptococcal [Recovered/Resolved]

NARRATIVE: CASE EVENT DATE: 20240101
